FAERS Safety Report 24716972 (Version 1)
Quarter: 2024Q4

REPORT INFORMATION
  Report Type: Other
  Country: SA (occurrence: SA)
  Receive Date: 20241210
  Receipt Date: 20241210
  Transmission Date: 20250114
  Serious: Yes (Other)
  Sender: COREPHARMA LLC
  Company Number: SA-CorePharma LLC-2166809

PATIENT
  Age: 65 Year
  Sex: Female

DRUGS (4)
  1. LISINOPRIL [Suspect]
     Active Substance: LISINOPRIL
     Indication: Hypertension
  2. AMLODIPINE [Suspect]
     Active Substance: AMLODIPINE BESYLATE
  3. TRASTUZUMAB [Suspect]
     Active Substance: TRASTUZUMAB
  4. METOPROLOL [Suspect]
     Active Substance: METOPROLOL

REACTIONS (1)
  - Cardiotoxicity [Unknown]
